FAERS Safety Report 5415251-7 (Version None)
Quarter: 2007Q3

REPORT INFORMATION
  Report Type: 
  Country: None (occurrence: None)
  Receive Date: 20070815
  Receipt Date: 20070810
  Transmission Date: 20080115
  Serious: Yes (Other)
  Sender: FDA-Public Use
  Company Number: US-AMGEN-US238248

PATIENT
  Sex: Male

DRUGS (3)
  1. VECTIBIX [Suspect]
     Indication: COLORECTAL CANCER
     Route: 065
     Dates: end: 20070101
  2. IRINOTECAN HCL [Concomitant]
     Route: 065
     Dates: end: 20070101
  3. FLUOROURACIL [Concomitant]
     Route: 065
     Dates: end: 20070101

REACTIONS (1)
  - IDIOPATHIC THROMBOCYTOPENIC PURPURA [None]
